FAERS Safety Report 8758595 (Version 2)
Quarter: 2012Q4

REPORT INFORMATION
  Report Type: Spontaneous
  Country: US (occurrence: None)
  Receive Date: 20120817
  Receipt Date: 20121130
  Transmission Date: 20130627
  Serious: Yes (Hospitalization)
  Sender: FDA-Public Use
  Company Number: FK201202276

PATIENT
  Age: 75 Year
  Sex: Female
  Weight: 50 kg

DRUGS (3)
  1. CARBOPLATIN [Suspect]
     Indication: LUNG ADENOCARCINOMA
     Dosage: 5 AUC, 1 in 3 weeks, intravenous (not otherwise specified)
     Route: 042
     Dates: start: 20111202, end: 20120206
  2. FARLETUZUMAB [Suspect]
     Indication: LUNG ADENOCARCINOMA
     Route: 042
     Dates: start: 20111202
  3. PEMETREXED [Suspect]
     Indication: LUNG ADENOCARCINOMA
     Dosage: 500 mg/m2, 1 in 3 weeks, intravenous (not other specified)
     Route: 042
     Dates: start: 20111202

REACTIONS (7)
  - Subclavian vein thrombosis [None]
  - Catheter site infection [None]
  - Haemoglobin decreased [None]
  - Blood albumin decreased [None]
  - Blood calcium decreased [None]
  - Blood magnesium decreased [None]
  - Activated partial thromboplastin time prolonged [None]
